FAERS Safety Report 8492352-0 (Version None)
Quarter: 2012Q2

REPORT INFORMATION
  Report Type: 
  Country: None (occurrence: None)
  Receive Date: 20120627
  Receipt Date: 20120612
  Transmission Date: 20120825
  Serious: Yes (Hospitalization)
  Sender: FDA-Public Use
  Company Number: 2012032623

PATIENT
  Age: 60 Year
  Sex: Male

DRUGS (6)
  1. CITALOPRAM HYDROBROMIDE [Concomitant]
  2. CYMBALTA [Concomitant]
  3. ATACAND [Concomitant]
  4. LYRICA [Concomitant]
  5. PANTOZOL (PANTOPRZOLE SODIUM) [Concomitant]
  6. PRIVIGEN [Suspect]
     Indication: SECONDARY IMMUNODEFICIENCY
     Dosage: 30 MG, INFUSION RATE 1.0ML/ML, INTRAVENOUS (NOT OTHERWISE SPECIFIED)
     Route: 042
     Dates: start: 20120611, end: 20120611

REACTIONS (5)
  - CYANOSIS [None]
  - CHILLS [None]
  - PYREXIA [None]
  - CHEST DISCOMFORT [None]
  - PNEUMONIA [None]
